FAERS Safety Report 19968730 (Version 1)
Quarter: 2021Q4

REPORT INFORMATION
  Report Type: Report from Study
  Country: CA (occurrence: CA)
  Receive Date: 20211019
  Receipt Date: 20211019
  Transmission Date: 20220303
  Serious: Yes (Other)
  Sender: FDA-Public Use
  Company Number: CA-JNJFOC-20211025428

PATIENT
  Age: 14 Year
  Sex: Male
  Weight: 47.4 kg

DRUGS (1)
  1. REMICADE [Suspect]
     Active Substance: INFLIXIMAB
     Indication: Colitis ulcerative
     Dosage: LAST INFUSION ON 16-SEP-2021
     Route: 042

REACTIONS (5)
  - Blood pressure decreased [Unknown]
  - Infusion related reaction [Unknown]
  - Chest discomfort [Recovered/Resolved]
  - Nasopharyngitis [Unknown]
  - Pallor [Recovered/Resolved]

NARRATIVE: CASE EVENT DATE: 20211001
